FAERS Safety Report 4639932-8 (Version None)
Quarter: 2005Q2

REPORT INFORMATION
  Report Type: 
  Country: None (occurrence: None)
  Receive Date: 20050328
  Receipt Date: 20050105
  Transmission Date: 20051028
  Serious: No
  Sender: FDA-Public Use
  Company Number: USA050187547

PATIENT
  Age: 64 Year
  Sex: Female

DRUGS (12)
  1. STRATTERA [Suspect]
     Indication: ATTENTION DEFICIT/HYPERACTIVITY DISORDER
     Dosage: 18 MG DAY
     Dates: start: 20041231
  2. WELLBUTRIN [Concomitant]
  3. PRILOSEC (OMEPRAZOLE RATIOPHARM) [Concomitant]
  4. LOVASTATIN [Concomitant]
  5. FOSAMAX [Concomitant]
  6. XANAX (ALPRAZOLAM DUM) [Concomitant]
  7. DARVOCET-N 100 [Concomitant]
  8. CALCIUM GLUCONATE [Concomitant]
  9. VITAMIN D [Concomitant]
  10. VITAMIN B COMPLEX CAP [Concomitant]
  11. OMEGA 3 (FISH OIL) [Concomitant]
  12. ASPIRIN [Concomitant]

REACTIONS (6)
  - ANXIETY [None]
  - DEPRESSION [None]
  - FEAR [None]
  - HEADACHE [None]
  - HEART RATE INCREASED [None]
  - THINKING ABNORMAL [None]
